FAERS Safety Report 6889155-7 (Version None)
Quarter: 2010Q3

REPORT INFORMATION
  Report Type: 
  Country: None (occurrence: None)
  Receive Date: 20100730
  Receipt Date: 20071231
  Transmission Date: 20110219
  Serious: No
  Sender: FDA-Public Use
  Company Number: US-PFIZER INC-2008000903

PATIENT
  Sex: Female

DRUGS (2)
  1. LIPITOR [Suspect]
  2. NIACIN [Concomitant]

REACTIONS (1)
  - FLATULENCE [None]
